FAERS Safety Report 12318545 (Version 3)
Quarter: 2016Q2

REPORT INFORMATION
  Report Type: Report from Study
  Country: GB (occurrence: GB)
  Receive Date: 20160429
  Receipt Date: 20160513
  Transmission Date: 20160815
  Serious: Yes (Other)
  Sender: FDA-Public Use
  Company Number: GB-JNJFOC-20160423822

PATIENT
  Age: 38 Year
  Sex: Female

DRUGS (2)
  1. STELARA [Suspect]
     Active Substance: USTEKINUMAB
     Indication: PSORIASIS
     Route: 058
     Dates: start: 20160429
  2. STELARA [Suspect]
     Active Substance: USTEKINUMAB
     Indication: PSORIASIS
     Route: 058
     Dates: start: 20151008

REACTIONS (6)
  - Abdominal distension [Unknown]
  - Dyspepsia [Unknown]
  - Drug effect incomplete [Unknown]
  - Lower respiratory tract infection [Recovered/Resolved]
  - Eructation [Unknown]
  - Cough [Unknown]

NARRATIVE: CASE EVENT DATE: 20160430
